FAERS Safety Report 8709378 (Version 2)
Quarter: 2012Q4

REPORT INFORMATION
  Report Type: 
  Country: US (occurrence: US)
  Receive Date: 20120806
  Receipt Date: 20120921
  Transmission Date: 20130627
  Serious: Yes (Hospitalization)
  Sender: FDA-Public Use
  Company Number: US-ASTRAZENECA-2012SE53495

PATIENT
  Age: 79 Year
  Sex: Female
  Weight: 90.7 kg

DRUGS (4)
  1. SYMBICORT [Suspect]
     Indication: EMPHYSEMA
     Dosage: 160/4.5 MCG, 2 PUFFS, BID
     Route: 055
     Dates: start: 2009
  2. SPIREVA [Concomitant]
  3. XOPENEX [Concomitant]
     Dosage: PRN
  4. PRADAXA [Concomitant]

REACTIONS (2)
  - Atrial fibrillation [Unknown]
  - Dysphonia [Not Recovered/Not Resolved]
